FAERS Safety Report 26054887 (Version 2)
Quarter: 2025Q4

REPORT INFORMATION
  Report Type: Spontaneous
  Country: CH (occurrence: CH)
  Receive Date: 20251117
  Receipt Date: 20251121
  Transmission Date: 20260118
  Serious: Yes (Hospitalization, Other)
  Sender: PFIZER
  Company Number: None

PATIENT
  Age: 64 Year
  Sex: Female

DRUGS (5)
  1. LORLATINIB [Suspect]
     Active Substance: LORLATINIB
     Indication: Lung adenocarcinoma stage IV
     Dosage: FREQ:24 H;
     Dates: start: 20250924, end: 20251015
  2. LORLATINIB [Suspect]
     Active Substance: LORLATINIB
     Indication: Malignant neoplasm progression
  3. ALECENSA [Concomitant]
     Active Substance: ALECTINIB HYDROCHLORIDE
     Indication: Lung adenocarcinoma stage IV
     Dosage: UNK
     Dates: start: 20250314, end: 202508
  4. ALECENSA [Concomitant]
     Active Substance: ALECTINIB HYDROCHLORIDE
     Dosage: UNK
     Dates: start: 202508, end: 20250919
  5. ELIQUIS [Concomitant]
     Active Substance: APIXABAN
     Indication: Pulmonary embolism
     Dosage: FREQ:12 H;
     Dates: start: 202501

REACTIONS (2)
  - Respiratory failure [Recovering/Resolving]
  - Pleural effusion [Recovering/Resolving]

NARRATIVE: CASE EVENT DATE: 20250926
